FAERS Safety Report 9364235 (Version 1)
Quarter: 2013Q2

REPORT INFORMATION
  Report Type: Spontaneous
  Country: US (occurrence: None)
  Receive Date: 20130619
  Receipt Date: 20130619
  Transmission Date: 20140414
  Serious: Yes (Hospitalization)
  Sender: FDA-Public Use
  Company Number: 148641

PATIENT
  Age: 64 Year
  Sex: Female
  Weight: 62 kg

DRUGS (1)
  1. LEUCOVORIN CALCIUM [Suspect]
     Indication: COLORECTAL CANCER METASTATIC
     Dosage: 400MG/M2 DAY 1 EVERY 14 DAYS
     Dates: start: 20130227, end: 20130415

REACTIONS (7)
  - Urinary tract infection [None]
  - Gastritis [None]
  - Abdominal pain [None]
  - Abdominal hernia [None]
  - Rectal cancer [None]
  - Dehydration [None]
  - Anaemia [None]
